FAERS Safety Report 9664571 (Version 1)
Quarter: 2013Q4

REPORT INFORMATION
  Report Type: Spontaneous
  Country: US (occurrence: None)
  Receive Date: 20131031
  Receipt Date: 20131031
  Transmission Date: 20140711
  Serious: Yes (Death, Life-Threatening, Hospitalization)
  Sender: FDA-Public Use
  Company Number: None

PATIENT
  Age: 76 Year
  Sex: Female
  Weight: 63.5 kg

DRUGS (1)
  1. REVLIMID 5 MG CELGENE [Suspect]
     Indication: MYELODYSPLASTIC SYNDROME
     Dosage: 1 PILL, ONCE DAILY, TAKEN BY MOUTH
     Route: 048
     Dates: start: 20131010, end: 20131021

REACTIONS (4)
  - Anaemia [None]
  - Pulmonary thrombosis [None]
  - Abdominal pain [None]
  - Blood urine present [None]
